FAERS Safety Report 5709693-X (Version None)
Quarter: 2008Q2

REPORT INFORMATION
  Report Type: 
  Country: None (occurrence: None)
  Receive Date: 20080418
  Receipt Date: 20080409
  Transmission Date: 20081010
  Serious: Yes (Other)
  Sender: FDA-Public Use
  Company Number: PHHY2008BR05359

PATIENT
  Age: 9 Year
  Sex: Male
  Weight: 31 kg

DRUGS (3)
  1. RITALIN LA [Suspect]
     Indication: ATTENTION DEFICIT/HYPERACTIVITY DISORDER
     Dosage: 20 MG, QD
     Route: 048
  2. RITALIN [Suspect]
     Indication: ATTENTION DEFICIT/HYPERACTIVITY DISORDER
     Dosage: 10 MG/ 2CAPS DAILY
     Route: 048
     Dates: start: 20070301
  3. RITALIN [Suspect]
     Dosage: 10 MG, BID
     Route: 048

REACTIONS (7)
  - ABNORMAL BEHAVIOUR [None]
  - ANOREXIA [None]
  - CRYING [None]
  - DEPRESSION [None]
  - FIGHT IN SCHOOL [None]
  - PERSONALITY CHANGE [None]
  - TREATMENT NONCOMPLIANCE [None]
